FAERS Safety Report 12880091 (Version 1)
Quarter: 2016Q4

REPORT INFORMATION
  Report Type: Spontaneous
  Country: US (occurrence: US)
  Receive Date: 20161021
  Receipt Date: 20161021
  Transmission Date: 20170207
  Serious: No
  Sender: FDA-Public Use
  Company Number: None

PATIENT
  Age: 82 Year
  Sex: Female

DRUGS (1)
  1. IBRANCE [Suspect]
     Active Substance: PALBOCICLIB
     Indication: BREAST CANCER
     Dosage: 125MG DAILY FOR 21 DAYS, THEN 7 ORALLY
     Route: 048
     Dates: start: 20160609

REACTIONS (3)
  - Erythema [None]
  - Pruritus generalised [None]
  - Dry skin [None]

NARRATIVE: CASE EVENT DATE: 20161010
